FAERS Safety Report 8479546-5 (Version None)
Quarter: 2012Q2

REPORT INFORMATION
  Report Type: 
  Country: None (occurrence: None)
  Receive Date: 20120629
  Receipt Date: 20120629
  Transmission Date: 20120825
  Serious: Yes (Hospitalization, Other)
  Sender: FDA-Public Use
  Company Number: FR-PFIZER INC-2012152891

PATIENT
  Age: 48 Year
  Sex: Female

DRUGS (2)
  1. PYOSTACINE [Concomitant]
     Indication: NASAL ABSCESS
     Dosage: UNK
     Route: 048
     Dates: start: 20120409, end: 20120416
  2. IBUPROFEN (ADVIL) [Suspect]
     Indication: NASAL ABSCESS
     Dosage: 400 MG, 3X/DAY
     Route: 048
     Dates: start: 20120409, end: 20120416

REACTIONS (4)
  - CONDITION AGGRAVATED [None]
  - NASAL ABSCESS [None]
  - CELLULITIS [None]
  - OEDEMA [None]
